FAERS Safety Report 12208478 (Version 2)
Quarter: 2016Q3

REPORT INFORMATION
  Report Type: Report from Study
  Country: US (occurrence: US)
  Receive Date: 20160324
  Receipt Date: 20160714
  Transmission Date: 20161109
  Serious: No
  Sender: FDA-Public Use
  Company Number: GXBR2015US002689

PATIENT
  Age: 25 Year
  Sex: Female

DRUGS (3)
  1. VITAFOL                            /01718401/ [Concomitant]
     Indication: PRENATAL CARE
     Dosage: UNK DF, UNK
     Route: 065
     Dates: start: 20150924
  2. SOVALDI [Suspect]
     Active Substance: SOFOSBUVIR
     Indication: PRODUCT USED FOR UNKNOWN INDICATION
     Dosage: UNK DF, UNK
     Route: 065
  3. RIBAVIRIN. [Suspect]
     Active Substance: RIBAVIRIN
     Indication: HEPATITIS C
     Dosage: UNK DF, UNK
     Route: 048
     Dates: start: 20150519, end: 20150801

REACTIONS (3)
  - Urinary tract infection [Recovered/Resolved]
  - Normal newborn [Unknown]
  - Maternal exposure during pregnancy [Unknown]

NARRATIVE: CASE EVENT DATE: 20160531
